FAERS Safety Report 8339307-4 (Version None)
Quarter: 2012Q2

REPORT INFORMATION
  Report Type: 
  Country: None (occurrence: None)
  Receive Date: 20120507
  Receipt Date: 20120427
  Transmission Date: 20120825
  Serious: Yes (Hospitalization)
  Sender: FDA-Public Use
  Company Number: US-BAYER-2011-075815

PATIENT
  Sex: Female
  Weight: 90.703 kg

DRUGS (2)
  1. YAZ [Suspect]
     Indication: PREMENSTRUAL SYNDROME
     Dosage: UNK
     Dates: start: 20080801, end: 20081201
  2. THYROID TAB [Concomitant]

REACTIONS (1)
  - GALLBLADDER INJURY [None]
